FAERS Safety Report 9738420 (Version 2)
Quarter: 2013Q4

REPORT INFORMATION
  Report Type: Report from Study
  Country: US (occurrence: US)
  Receive Date: 20131208
  Receipt Date: 20131208
  Transmission Date: 20140711
  Serious: Yes (Other)
  Sender: FDA-Public Use
  Company Number: US-ROCHE-1278121

PATIENT
  Age: 43 Year
  Sex: Male
  Weight: 70.37 kg

DRUGS (2)
  1. ZELBORAF [Suspect]
     Indication: METASTATIC MALIGNANT MELANOMA
     Route: 048
     Dates: start: 20130830
  2. ZELBORAF [Suspect]
     Dosage: 4 PILLS IN MORNING AND 4 IN EVENING
     Route: 048
     Dates: start: 2013

REACTIONS (3)
  - Hepatic cancer [Not Recovered/Not Resolved]
  - Local swelling [Not Recovered/Not Resolved]
  - Erythema [Not Recovered/Not Resolved]
